FAERS Safety Report 16955517 (Version 1)
Quarter: 2019Q4

REPORT INFORMATION
  Report Type: Spontaneous
  Country: TW (occurrence: TW)
  Receive Date: 20191024
  Receipt Date: 20191024
  Transmission Date: 20200122
  Serious: Yes (Hospitalization)
  Sender: FDA-Public Use
  Company Number: TW-ALKEM LABORATORIES LIMITED-TW-ALKEM-2019-06995

PATIENT
  Age: 68 Year
  Sex: Male

DRUGS (2)
  1. PREDNISOLONE. [Suspect]
     Active Substance: PREDNISOLONE
     Indication: PEMPHIGOID
     Dosage: 5 MILLIGRAM, TID
     Route: 048
  2. MINOCYCLINE [Suspect]
     Active Substance: MINOCYCLINE HYDROCHLORIDE
     Indication: PEMPHIGOID
     Dosage: 100 MILLIGRAM, BID
     Route: 048

REACTIONS (2)
  - Treatment noncompliance [Unknown]
  - Skin hyperpigmentation [Unknown]
